FAERS Safety Report 5385633-0 (Version None)
Quarter: 2007Q3

REPORT INFORMATION
  Report Type: 
  Country: None (occurrence: None)
  Receive Date: 20070712
  Receipt Date: 20070711
  Transmission Date: 20080115
  Serious: Yes (Other)
  Sender: FDA-Public Use
  Company Number: A0662651A

PATIENT
  Age: 34 Year
  Sex: Female
  Weight: 85 kg

DRUGS (2)
  1. ALLI [Suspect]
     Indication: WEIGHT CONTROL
     Route: 048
     Dates: start: 20070625, end: 20070709
  2. NONE [Concomitant]

REACTIONS (7)
  - BRONCHITIS [None]
  - DIARRHOEA [None]
  - HAEMATOCHEZIA [None]
  - INFLUENZA [None]
  - MYALGIA [None]
  - RECTAL HAEMORRHAGE [None]
  - VOMITING [None]
